FAERS Safety Report 9201416 (Version 20)
Quarter: 2013Q4

REPORT INFORMATION
  Report Type: Report from Study
  Country: CA (occurrence: CA)
  Receive Date: 20130401
  Receipt Date: 20131025
  Transmission Date: 20140711
  Serious: Yes (Death, Disabling, Other)
  Sender: FDA-Public Use
  Company Number: US-ASTELLAS-2013US003398

PATIENT
  Age: 69 Year
  Sex: Female
  Weight: 60 kg

DRUGS (23)
  1. ERLOTINIB TABLET [Suspect]
     Indication: NON-SMALL CELL LUNG CANCER METASTATIC
     Dosage: UNK
     Route: 048
     Dates: end: 20120705
  2. ERLOTINIB TABLET [Suspect]
     Dosage: UNK
     Route: 048
     Dates: start: 2011, end: 201304
  3. AVASTIN /01555201/ [Suspect]
     Indication: NON-SMALL CELL LUNG CANCER METASTATIC
     Dosage: 337 MG, Q2W
     Route: 042
     Dates: start: 20100625, end: 20100819
  4. AVASTIN /01555201/ [Suspect]
     Dosage: 313 MG, Q2W
     Route: 042
     Dates: start: 20101222
  5. AVASTIN /01555201/ [Suspect]
     Dosage: 313 MG, Q2W
     Route: 042
     Dates: start: 20110112
  6. AVASTIN /01555201/ [Suspect]
     Dosage: 313 MG, Q3W
     Route: 042
     Dates: start: 20110308
  7. AVASTIN /01555201/ [Suspect]
     Dosage: 300 MG, Q3W
     Route: 042
     Dates: start: 20110427
  8. AVASTIN /01555201/ [Suspect]
     Dosage: 300 MG, Q2W
     Route: 042
     Dates: start: 20110812
  9. AVASTIN /01555201/ [Suspect]
     Dosage: 300 MG, Q3W
     Route: 042
     Dates: start: 20111222
  10. AVASTIN /01555201/ [Suspect]
     Dosage: 300 MG, Q2W
     Route: 042
     Dates: start: 20120113
  11. AVASTIN /01555201/ [Suspect]
     Dosage: 300 MG, Q2W
     Route: 042
     Dates: start: 20120316
  12. AVASTIN /01555201/ [Suspect]
     Dosage: 600 MG, Q2W
     Route: 042
     Dates: start: 20120524
  13. AVASTIN /01555201/ [Suspect]
     Dosage: 450 MG, Q2W
     Route: 042
     Dates: start: 20120705
  14. AVASTIN /01555201/ [Suspect]
     Dosage: 290 MG, Q2W
     Route: 042
     Dates: start: 20121009
  15. AVASTIN /01555201/ [Suspect]
     Dosage: 300 MG, Q2W
     Route: 042
     Dates: start: 20121206, end: 201212
  16. AVASTIN /01555201/ [Suspect]
     Dosage: 300 MG, Q2W
     Route: 042
     Dates: start: 20130322
  17. AVASTIN /01555201/ [Suspect]
     Dosage: 300 MG, Q3W
     Route: 042
     Dates: start: 20130821, end: 20130827
  18. DICHLOROACETIC ACID [Concomitant]
     Indication: PRODUCT USED FOR UNKNOWN INDICATION
     Dosage: UNK
     Route: 065
     Dates: start: 20130413, end: 20130416
  19. CEFPODOXIME PROXETIL [Concomitant]
     Indication: URINARY TRACT INFECTION
     Dosage: UNK
     Route: 065
     Dates: start: 20130428, end: 20130504
  20. ANTINEOPLASTIC AGENTS [Concomitant]
     Indication: PRODUCT USED FOR UNKNOWN INDICATION
     Dosage: UNK
     Route: 065
  21. KEPPRA [Concomitant]
     Indication: PRODUCT USED FOR UNKNOWN INDICATION
     Dosage: UNK
     Route: 065
  22. MULTIVITAMINS, PLAIN [Concomitant]
     Indication: PRODUCT USED FOR UNKNOWN INDICATION
     Dosage: UNK
     Route: 065
  23. OTHER NUTRIENTS [Concomitant]
     Indication: PRODUCT USED FOR UNKNOWN INDICATION
     Dosage: UNK
     Route: 065

REACTIONS (36)
  - Death [Fatal]
  - Gait disturbance [Not Recovered/Not Resolved]
  - Oncologic complication [Not Recovered/Not Resolved]
  - Malignant neoplasm progression [Not Recovered/Not Resolved]
  - Pain [Not Recovered/Not Resolved]
  - Pain [Unknown]
  - Mobility decreased [Unknown]
  - Fall [Unknown]
  - Laceration [Unknown]
  - Contusion [Unknown]
  - Sinus congestion [Not Recovered/Not Resolved]
  - Neck pain [Unknown]
  - Arthralgia [Unknown]
  - Hypoaesthesia [Recovered/Resolved]
  - Pain in extremity [Not Recovered/Not Resolved]
  - Sinusitis [Recovered/Resolved]
  - Cystitis [Recovered/Resolved]
  - Local swelling [Not Recovered/Not Resolved]
  - Dizziness [Unknown]
  - Asthenia [Not Recovered/Not Resolved]
  - Nasopharyngitis [Not Recovered/Not Resolved]
  - Dyspnoea [Unknown]
  - Fatigue [Unknown]
  - Cystitis [Recovered/Resolved]
  - Influenza [Unknown]
  - Nasopharyngitis [Recovered/Resolved]
  - Headache [Recovered/Resolved]
  - Anxiety [Unknown]
  - Urinary tract infection [Recovered/Resolved]
  - Diarrhoea [Unknown]
  - Constipation [Not Recovered/Not Resolved]
  - Nausea [Not Recovered/Not Resolved]
  - Decreased appetite [Unknown]
  - Fatigue [Not Recovered/Not Resolved]
  - Sinusitis [Recovering/Resolving]
  - Cystitis [Recovered/Resolved]
